FAERS Safety Report 14152485 (Version 1)
Quarter: 2017Q4

REPORT INFORMATION
  Report Type: Spontaneous
  Country: CN (occurrence: CN)
  Receive Date: 20171102
  Receipt Date: 20171102
  Transmission Date: 20180321
  Serious: Yes (Other)
  Sender: FDA-Public Use
  Company Number: CN-MYLANLABS-2017M1067971

PATIENT
  Age: 31 Year
  Sex: Female

DRUGS (19)
  1. DEXAMETHASONE. [Suspect]
     Active Substance: DEXAMETHASONE
     Dosage: 5 MG ON DAYS 12 TO 19
     Route: 065
     Dates: start: 20140913
  2. ETOPOSIDE. [Suspect]
     Active Substance: ETOPOSIDE
     Indication: ACUTE LYMPHOCYTIC LEUKAEMIA REFRACTORY
     Dosage: 0.1 G ON DAYS 1 TO 7
     Route: 065
     Dates: start: 20141104
  3. ARA-C [Suspect]
     Active Substance: CYTARABINE
     Dosage: 20 MG/12H ON DAYS 1 TO 10; SAME DOSE GIVEN ON 31 MAY 2015
     Route: 065
     Dates: start: 20150421
  4. ARA-C [Suspect]
     Active Substance: CYTARABINE
     Dosage: 25 MG/12H ON DAYS 1 TO 8
     Route: 065
     Dates: start: 20150531
  5. DEXAMETHASONE. [Suspect]
     Active Substance: DEXAMETHASONE
     Indication: ACUTE LYMPHOCYTIC LEUKAEMIA REFRACTORY
     Dosage: 10 MG/DAY FOR SEVEN DAYS
     Route: 065
     Dates: start: 20140905
  6. METHOTREXATE. [Suspect]
     Active Substance: METHOTREXATE
     Indication: ACUTE LYMPHOCYTIC LEUKAEMIA REFRACTORY
     Route: 065
     Dates: start: 20141202
  7. METHOTREXATE. [Suspect]
     Active Substance: METHOTREXATE
     Dosage: 2.0 G ON DAY 1
     Route: 065
     Dates: start: 20150206
  8. CYTARABINE. [Suspect]
     Active Substance: CYTARABINE
     Indication: ACUTE LYMPHOCYTIC LEUKAEMIA REFRACTORY
     Route: 065
     Dates: start: 20141202
  9. DAUNORUBICIN [Suspect]
     Active Substance: DAUNORUBICIN
     Indication: ACUTE LYMPHOCYTIC LEUKAEMIA REFRACTORY
     Dosage: 60 MG ON DAYS 1 TO 4, 14 TO 17
     Route: 065
     Dates: start: 20140913
  10. ACLA [Suspect]
     Active Substance: AMOXICILLIN\CLAVULANATE POTASSIUM
     Indication: ACUTE LYMPHOCYTIC LEUKAEMIA REFRACTORY
     Dosage: 20 MG ON DAYS 1, 3, 5, 7, 9;
     Route: 065
     Dates: start: 20150421
  11. FOLINIC ACID [Suspect]
     Active Substance: LEUCOVORIN
     Indication: ACUTE LYMPHOCYTIC LEUKAEMIA REFRACTORY
     Route: 065
     Dates: start: 20141202
  12. VINCRISTINE [Suspect]
     Active Substance: VINCRISTINE
     Indication: ACUTE LYMPHOCYTIC LEUKAEMIA REFRACTORY
     Dosage: 2 MG ON DAYS 1, 8, 14, 24
     Route: 065
     Dates: start: 20140913
  13. ARA-C [Suspect]
     Active Substance: CYTARABINE
     Indication: ACUTE LYMPHOCYTIC LEUKAEMIA REFRACTORY
     Dosage: 0.2 G ON DAYS 1 TO 7
     Route: 065
     Dates: start: 20141104
  14. ASPARAGINASE [Suspect]
     Active Substance: ASPARAGINASE
     Indication: ACUTE LYMPHOCYTIC LEUKAEMIA REFRACTORY
     Dosage: 10000 U/DAY FOR 10 DAYS
     Route: 065
     Dates: start: 20150206
  15. PEGASPARGASE [Suspect]
     Active Substance: PEGASPARGASE
     Indication: ACUTE LYMPHOCYTIC LEUKAEMIA REFRACTORY
     Dosage: 3750U TWICE IH; SAME DOSE GIVEN ON 31 MAY 2015
     Route: 065
     Dates: start: 20150421
  16. DEXAMETHASONE. [Suspect]
     Active Substance: DEXAMETHASONE
     Dosage: 10 MG ON DAYS 1 TO 8
     Route: 065
     Dates: start: 20140913
  17. MITOXANTRONE [Suspect]
     Active Substance: MITOXANTRONE HYDROCHLORIDE
     Indication: ACUTE LYMPHOCYTIC LEUKAEMIA REFRACTORY
     Dosage: 10 MG ON DAYS 1 TO 3
     Route: 065
     Dates: start: 20141104
  18. CYCLOPHOSPHAMIDE. [Suspect]
     Active Substance: CYCLOPHOSPHAMIDE
     Indication: ACUTE LYMPHOCYTIC LEUKAEMIA REFRACTORY
     Dosage: 1000 MG ON DAY 1
     Route: 065
     Dates: start: 20140913
  19. METHYLPREDNISOLONE. [Suspect]
     Active Substance: METHYLPREDNISOLONE
     Indication: ACUTE LYMPHOCYTIC LEUKAEMIA REFRACTORY
     Route: 065
     Dates: start: 20141202

REACTIONS (8)
  - Stem cell transplant [None]
  - Alanine aminotransferase increased [Recovered/Resolved]
  - Thrombocytopenia [Recovered/Resolved]
  - Respiratory tract infection fungal [Unknown]
  - Agranulocytosis [Recovered/Resolved]
  - Blood bilirubin increased [Recovered/Resolved]
  - Maternal exposure during pregnancy [Unknown]
  - Soft tissue infection [Unknown]
